FAERS Safety Report 8885291 (Version 1)
Quarter: 2012Q4

REPORT INFORMATION
  Report Type: 
  Country: US (occurrence: US)
  Receive Date: 20121105
  Receipt Date: 20121105
  Transmission Date: 20130627
  Serious: Yes (Other)
  Sender: FDA-Public Use
  Company Number: US-JNJCP-30000134492

PATIENT
  Age: 36 Year
  Sex: Female
  Weight: 73 kg

DRUGS (1)
  1. NEUTROGENA OIL FREE ACNE WASH [Suspect]
     Dosage: quarter size amount, every other day
     Route: 047
     Dates: start: 20121012, end: 20121018

REACTIONS (4)
  - Accidental exposure to product [Not Recovered/Not Resolved]
  - Skin swelling [Not Recovered/Not Resolved]
  - Chemical burns of eye [Not Recovered/Not Resolved]
  - Incorrect route of drug administration [None]
